FAERS Safety Report 13961523 (Version 2)
Quarter: 2018Q1

REPORT INFORMATION
  Report Type: Spontaneous
  Country: RU (occurrence: RU)
  Receive Date: 20170912
  Receipt Date: 20180307
  Transmission Date: 20180508
  Serious: Yes (Hospitalization, Other)
  Sender: FDA-Public Use
  Company Number: RU-ASTRAZENECA-2017SE92387

PATIENT
  Age: 78 Year
  Sex: Male
  Weight: 61 kg

DRUGS (9)
  1. BRILINTA [Suspect]
     Active Substance: TICAGRELOR
     Indication: ANGINA UNSTABLE
     Route: 048
  2. THROMBO ASS [Concomitant]
     Active Substance: ASPIRIN
  3. METOPROLOL TARTRATE. [Concomitant]
     Active Substance: METOPROLOL TARTRATE
  4. BIDOP [Concomitant]
  5. INSPRA [Concomitant]
     Active Substance: EPLERENONE
  6. PREDUCTAL [Concomitant]
     Active Substance: TRIMETAZIDINE DIHYDROCHLORIDE
  7. LIPRIMAR [Concomitant]
     Active Substance: ATORVASTATIN CALCIUM
  8. NEXIUM [Concomitant]
     Active Substance: ESOMEPRAZOLE MAGNESIUM
  9. ATORVASTATIN [Concomitant]
     Active Substance: ATORVASTATIN

REACTIONS (4)
  - Product use issue [Not Recovered/Not Resolved]
  - Off label use [Not Recovered/Not Resolved]
  - Cataract [Recovered/Resolved]
  - Vascular stent occlusion [Not Recovered/Not Resolved]

NARRATIVE: CASE EVENT DATE: 201704
